FAERS Safety Report 4411583-X (Version None)
Quarter: 2004Q3

REPORT INFORMATION
  Report Type: 
  Country: None (occurrence: None)
  Receive Date: 20040730
  Receipt Date: 20040706
  Transmission Date: 20050211
  Serious: Yes (Hospitalization, Other)
  Sender: FDA-Public Use
  Company Number: US-BRISTOL-MYERS SQUIBB COMPANY-12632444

PATIENT
  Age: 64 Year
  Sex: Female
  Weight: 63 kg

DRUGS (11)
  1. PRAVACHOL [Suspect]
     Indication: BLOOD CHOLESTEROL INCREASED
     Dosage: DOSES FROM 20MG TO 40MG; DURATION OF THERAPY: 16 TO 19 YEARS
     Route: 048
     Dates: end: 20021101
  2. POTASSIUM [Concomitant]
  3. LASIX [Concomitant]
  4. VASOTEC [Concomitant]
  5. SYNTHROID [Concomitant]
  6. SENNA [Concomitant]
     Indication: GASTROINTESTINAL MOTILITY DISORDER
  7. LEXAPRO [Concomitant]
  8. CLONAZEPAM [Concomitant]
  9. TRAZODONE HCL [Concomitant]
  10. GARLIC [Concomitant]
  11. ZANTAC [Concomitant]

REACTIONS (9)
  - APHASIA [None]
  - DECREASED APPETITE [None]
  - GENERALISED OEDEMA [None]
  - HEPATIC STEATOSIS [None]
  - LENTIGO [None]
  - LIVER DISORDER [None]
  - OROPHARYNGEAL SWELLING [None]
  - URINE OUTPUT DECREASED [None]
  - VOMITING [None]
